FAERS Safety Report 25076959 (Version 3)
Quarter: 2025Q3

REPORT INFORMATION
  Report Type: Report from Study
  Country: US (occurrence: US)
  Receive Date: 20250314
  Receipt Date: 20250826
  Transmission Date: 20251021
  Serious: Yes (Other)
  Sender: ABBVIE
  Company Number: US-ABBVIE-6169413

PATIENT
  Sex: Female

DRUGS (1)
  1. RINVOQ [Suspect]
     Active Substance: UPADACITINIB
     Indication: Colitis ulcerative
     Route: 048
     Dates: start: 20231109

REACTIONS (10)
  - Squamous cell carcinoma of skin [Unknown]
  - Cyst [Recovered/Resolved]
  - Oral candidiasis [Recovering/Resolving]
  - Hip arthroplasty [Recovering/Resolving]
  - Colitis ulcerative [Recovering/Resolving]
  - Pain [Not Recovered/Not Resolved]
  - Arthralgia [Recovering/Resolving]
  - Constipation [Unknown]
  - Arthritis [Unknown]
  - Oropharyngeal pain [Recovering/Resolving]

NARRATIVE: CASE EVENT DATE: 20250501
